FAERS Safety Report 21775304 (Version 1)
Quarter: 2022Q4

REPORT INFORMATION
  Report Type: Report from Study
  Country: US (occurrence: US)
  Receive Date: 20221225
  Receipt Date: 20221225
  Transmission Date: 20230112
  Serious: No
  Sender: FDA-Public Use
  Company Number: US-ABBVIE-4249086

PATIENT
  Sex: Male

DRUGS (1)
  1. VENCLEXTA [Suspect]
     Active Substance: VENETOCLAX
     Indication: Leukaemia
     Dosage: TAKE 4 TABLET(S) BY MOUTH FOR 1 WEEK FOLLOWED BY 5 WEEKS OFF.?FORM STRENGTH: 100 MILLIGRAM
     Route: 048

REACTIONS (2)
  - Intentional product misuse [Unknown]
  - Off label use [Unknown]
